FAERS Safety Report 9209356 (Version 1)
Quarter: 2013Q2

REPORT INFORMATION
  Report Type: Spontaneous
  Country: US (occurrence: None)
  Receive Date: 20130403
  Receipt Date: 20130403
  Transmission Date: 20140414
  Serious: Yes (Other)
  Sender: FDA-Public Use
  Company Number: None

PATIENT
  Age: 54 Year
  Sex: Male
  Weight: 74.84 kg

DRUGS (1)
  1. FENOFIBRATE [Suspect]
     Indication: BLOOD TRIGLYCERIDES
     Dates: start: 20130310

REACTIONS (5)
  - Drug hypersensitivity [None]
  - Dyspnoea [None]
  - Chest discomfort [None]
  - Swollen tongue [None]
  - Oropharyngeal pain [None]
